FAERS Safety Report 20957163 (Version 1)
Quarter: 2022Q2

REPORT INFORMATION
  Report Type: Spontaneous
  Country: US (occurrence: US)
  Receive Date: 20220614
  Receipt Date: 20220614
  Transmission Date: 20220721
  Serious: No
  Sender: FDA-Public Use
  Company Number: US-PFM-2021-03541

PATIENT
  Sex: Female
  Weight: 6.848 kg

DRUGS (1)
  1. HEMANGEOL [Suspect]
     Active Substance: PROPRANOLOL HYDROCHLORIDE
     Indication: Product used for unknown indication
     Dosage: 2.6 ML TWICE DAILY
     Route: 065

REACTIONS (2)
  - Irritability [Not Recovered/Not Resolved]
  - Sleep disorder [Not Recovered/Not Resolved]
